FAERS Safety Report 13753356 (Version 1)
Quarter: 2017Q3

REPORT INFORMATION
  Report Type: Report from Study
  Country: None (occurrence: US)
  Receive Date: 20170714
  Receipt Date: 20170714
  Transmission Date: 20171127
  Serious: Yes (Life-Threatening, Hospitalization)
  Sender: FDA-Public Use
  Company Number: US-IPSEN BIOPHARMACEUTICALS, INC.-2010-0925

PATIENT
  Age: 13 Year
  Sex: Male
  Weight: 49.7 kg

DRUGS (2)
  1. INCRELEX [Suspect]
     Active Substance: MECASERMIN
     Indication: BODY HEIGHT BELOW NORMAL
     Dosage: 10 MG DAILY
     Route: 058
     Dates: start: 20100106, end: 20100321
  2. INCRELEX [Suspect]
     Active Substance: MECASERMIN
     Indication: PRODUCT USE IN UNAPPROVED INDICATION

REACTIONS (1)
  - Intracranial pressure increased [None]

NARRATIVE: CASE EVENT DATE: 20100321
